FAERS Safety Report 6655013-6 (Version None)
Quarter: 2010Q1

REPORT INFORMATION
  Report Type: 
  Country: None (occurrence: None)
  Receive Date: 20100329
  Receipt Date: 20100315
  Transmission Date: 20100710
  Serious: Yes (Other)
  Sender: FDA-Public Use
  Company Number: AU-BAYER-201019245GPV

PATIENT
  Age: 33 Year
  Sex: Female
  Weight: 58 kg

DRUGS (1)
  1. MIRENA [Suspect]
     Indication: CONTRACEPTION
     Route: 015
     Dates: start: 20060501, end: 20080801

REACTIONS (11)
  - ANXIETY [None]
  - BACK PAIN [None]
  - FEELING HOT [None]
  - HYPERVENTILATION [None]
  - HYPOAESTHESIA [None]
  - MUSCULAR WEAKNESS [None]
  - NEUROLOGICAL SYMPTOM [None]
  - OVARIAN CYST [None]
  - PALPITATIONS [None]
  - PARAESTHESIA [None]
  - TREMOR [None]
